FAERS Safety Report 16358199 (Version 2)
Quarter: 2019Q2

REPORT INFORMATION
  Report Type: Spontaneous
  Country: US (occurrence: US)
  Receive Date: 20190527
  Receipt Date: 20190611
  Transmission Date: 20190711
  Serious: Yes (Other)
  Sender: FDA-Public Use
  Company Number: US-ALLERGAN-1921562US

PATIENT
  Sex: Female

DRUGS (1)
  1. VRAYLAR [Suspect]
     Active Substance: CARIPRAZINE
     Indication: PRODUCT USED FOR UNKNOWN INDICATION
     Dosage: UNK
     Route: 048

REACTIONS (7)
  - Dyspnoea [Unknown]
  - Angioedema [Unknown]
  - Pharyngeal swelling [Unknown]
  - Swelling face [Unknown]
  - Urticaria [Unknown]
  - Hypersensitivity [Unknown]
  - Pruritus [Not Recovered/Not Resolved]
